FAERS Safety Report 9080708 (Version 4)
Quarter: 2013Q2

REPORT INFORMATION
  Report Type: Spontaneous
  Country: JP (occurrence: JP)
  Receive Date: 20130218
  Receipt Date: 20130425
  Transmission Date: 20140414
  Serious: Yes (Death)
  Sender: FDA-Public Use
  Company Number: JP-BRISTOL-MYERS SQUIBB COMPANY-17384256

PATIENT
  Age: 47 Year
  Sex: Male
  Weight: 71 kg

DRUGS (10)
  1. ABILIFY DISCMELT TABS [Suspect]
     Indication: SCHIZOAFFECTIVE DISORDER
     Dosage: 28JAN13-31JAN13(4DAYS)?01FEB13-7FEB13(7DAYS): 24MG/D
     Route: 048
     Dates: start: 20130128, end: 20130207
  2. TAMIFLU [Suspect]
     Indication: INFLUENZA
     Dosage: CAPSULE?150MG/D
     Route: 048
     Dates: start: 20130204, end: 20130207
  3. RISPERDAL [Concomitant]
     Dates: end: 20130206
  4. ZYPREXA [Concomitant]
     Dates: start: 20110725, end: 20130207
  5. CONTOMIN [Concomitant]
     Dosage: TAB
     Dates: start: 20110725, end: 20130207
  6. VEGETAMIN A [Concomitant]
     Dosage: TAB
     Dates: start: 20110725, end: 20130207
  7. LIMAS [Concomitant]
     Dosage: TAB
     Dates: start: 20120222, end: 20130207
  8. EURODIN [Concomitant]
     Dosage: TAB
     Dates: start: 20120912, end: 20130207
  9. LORAZEPAM [Concomitant]
     Dosage: TAB
     Dates: start: 20121010, end: 20130207
  10. PROMETHAZINE HCL [Concomitant]
     Dosage: TAB
     Dates: start: 20130130, end: 20130207

REACTIONS (1)
  - Cardiac failure congestive [Fatal]
